FAERS Safety Report 17169246 (Version 1)
Quarter: 2019Q4

REPORT INFORMATION
  Report Type: Spontaneous
  Country: FR (occurrence: FR)
  Receive Date: 20191218
  Receipt Date: 20191218
  Transmission Date: 20200122
  Serious: Yes (Life-Threatening)
  Sender: FDA-Public Use
  Company Number: NVSC2019FR071533

PATIENT
  Age: 78 Year
  Sex: Male

DRUGS (2)
  1. TASIGNA [Suspect]
     Active Substance: NILOTINIB
     Indication: CHRONIC MYELOID LEUKAEMIA
     Dosage: 600 MG, QD
     Route: 048
     Dates: start: 20190915, end: 20190930
  2. NICARDIPINE HYDROCHLORIDE. [Interacting]
     Active Substance: NICARDIPINE HYDROCHLORIDE
     Indication: CARDIOMYOPATHY
     Dosage: 50 MG, QD
     Route: 048
     Dates: start: 2017

REACTIONS (3)
  - Drug interaction [Recovered/Resolved]
  - Cardiac failure [Recovering/Resolving]
  - Dyspnoea [Recovering/Resolving]

NARRATIVE: CASE EVENT DATE: 201909
